FAERS Safety Report 8594387-6 (Version None)
Quarter: 2012Q3

REPORT INFORMATION
  Report Type: 
  Country: None (occurrence: None)
  Receive Date: 20120815
  Receipt Date: 20120807
  Transmission Date: 20120928
  Serious: No
  Sender: FDA-Public Use
  Company Number: US-BIOGENIDEC-2012BI030084

PATIENT
  Age: 51 Year
  Sex: Female

DRUGS (2)
  1. TYSABRI [Suspect]
     Indication: MULTIPLE SCLEROSIS
     Route: 042
     Dates: start: 20100401, end: 20100723
  2. TYSABRI [Suspect]
     Route: 042
     Dates: start: 20110908, end: 20120709

REACTIONS (2)
  - COORDINATION ABNORMAL [None]
  - PAIN IN EXTREMITY [None]
